FAERS Safety Report 24882371 (Version 1)
Quarter: 2025Q1

REPORT INFORMATION
  Report Type: Spontaneous
  Country: CA (occurrence: CA)
  Receive Date: 20250124
  Receipt Date: 20250124
  Transmission Date: 20250409
  Serious: Yes (Other)
  Sender: TEVA
  Company Number: CA-TEVA-VS-3290153

PATIENT

DRUGS (2)
  1. DULOXETINE [Suspect]
     Active Substance: DULOXETINE
     Indication: Product used for unknown indication
     Route: 065
  2. ACETAMINOPHEN\CAFFEINE\CODEINE [Suspect]
     Active Substance: ACETAMINOPHEN\CAFFEINE\CODEINE
     Indication: Arthralgia
     Route: 065

REACTIONS (3)
  - Burning feet syndrome [Unknown]
  - Inadequate analgesia [Unknown]
  - Product complaint [Unknown]
